FAERS Safety Report 6637979-3 (Version None)
Quarter: 2010Q1

REPORT INFORMATION
  Report Type: 
  Country: None (occurrence: None)
  Receive Date: 20100317
  Receipt Date: 20100310
  Transmission Date: 20100710
  Serious: Yes (Death, Other)
  Sender: FDA-Public Use
  Company Number: PHEH2008US05011

PATIENT
  Sex: Male
  Weight: 99.773 kg

DRUGS (26)
  1. ELIDEL [Suspect]
     Indication: ECZEMA
     Dosage: UNK
     Route: 061
     Dates: start: 20040601
  2. CLODERM [Concomitant]
     Dosage: UNK
     Route: 061
     Dates: start: 20040601
  3. ATARAX [Concomitant]
     Dosage: UNK
     Route: 048
     Dates: start: 20030805
  4. PREDNISONE [Concomitant]
     Dosage: UNK
     Route: 048
     Dates: start: 20030805
  5. KEFLEX [Concomitant]
     Dosage: UNK
     Route: 048
     Dates: start: 20061211
  6. DECADRON PHOSPHATE [Concomitant]
     Dosage: 20MG IV
     Route: 041
     Dates: start: 20070726
  7. CYTOXAN [Concomitant]
     Dosage: 750MG/M2
     Route: 041
     Dates: start: 20070726
  8. ADRIAMYCIN PFS [Concomitant]
     Dosage: 50MG/M2
     Route: 041
     Dates: start: 20070726
  9. VINCRISTINE [Concomitant]
     Dosage: 2MG IV
     Route: 040
     Dates: start: 20070726
  10. ZOLINZA [Concomitant]
     Dosage: UNK
     Dates: start: 20070803
  11. TARGRETIN [Concomitant]
     Dosage: UNK
     Dates: start: 20060823
  12. ASPIRIN [Concomitant]
  13. SAW PALMETTO [Concomitant]
     Dosage: 160MG QD
     Dates: start: 20060824
  14. LIPITOR [Concomitant]
     Dosage: 20MG
     Route: 048
  15. OXSORALEN-ULTRA [Concomitant]
     Dosage: 10MG CAP
     Route: 048
  16. AMOXICILLIN [Concomitant]
     Dosage: 500MG
     Route: 048
  17. DOXYCYCLINE [Concomitant]
     Dosage: 100MG
     Route: 048
  18. ZOFRAN [Concomitant]
     Dosage: UNK
     Dates: start: 20080128
  19. ALLOPURINOL [Concomitant]
     Dosage: UNK
  20. SYMBICORT [Concomitant]
     Dosage: UNK
  21. HISTINEX PV [Concomitant]
  22. METRONIDAZOL ^ALPHARMA^ [Concomitant]
  23. PRAVASTATIN [Concomitant]
  24. TRIAMCINOLONE [Concomitant]
  25. ZYRTEC [Concomitant]
  26. RADIATION [Concomitant]

REACTIONS (31)
  - ACANTHOSIS NIGRICANS [None]
  - ANXIETY [None]
  - BLOOD CHOLESTEROL INCREASED [None]
  - BLOOD TRIGLYCERIDES INCREASED [None]
  - COMPUTERISED TOMOGRAM ABNORMAL [None]
  - CONDITION AGGRAVATED [None]
  - DEPRESSED MOOD [None]
  - DERMATITIS ATOPIC [None]
  - DISEASE COMPLICATION [None]
  - DISEASE PROGRESSION [None]
  - ECZEMA [None]
  - EMOTIONAL DISTRESS [None]
  - FACIAL PALSY [None]
  - FATIGUE [None]
  - GASTRITIS [None]
  - HYPERCHOLESTEROLAEMIA [None]
  - INJURY [None]
  - LUNG DISORDER [None]
  - LYMPHADENOPATHY [None]
  - MYCOSIS FUNGOIDES [None]
  - PAIN [None]
  - PANIC ATTACK [None]
  - PNEUMONIA [None]
  - SINUSITIS [None]
  - SKIN HYPERPIGMENTATION [None]
  - SKIN HYPOPIGMENTATION [None]
  - SKIN LESION [None]
  - STRESS [None]
  - T-CELL LYMPHOMA [None]
  - VARICOSE VEIN [None]
  - WEIGHT DECREASED [None]
